FAERS Safety Report 4716076-8 (Version None)
Quarter: 2005Q3

REPORT INFORMATION
  Report Type: 
  Country: None (occurrence: None)
  Receive Date: 20050718
  Receipt Date: 20050711
  Transmission Date: 20060218
  Serious: Yes (Death)
  Sender: FDA-Public Use
  Company Number: US-JNJFOC-20050702440

PATIENT
  Sex: Male

DRUGS (3)
  1. TYLENOL [Suspect]
  2. TYLENOL [Suspect]
  3. UNSPECIFIED NARCOTIC [Suspect]

REACTIONS (1)
  - LIVER DISORDER [None]
